FAERS Safety Report 11657257 (Version 2)
Quarter: 2015Q4

REPORT INFORMATION
  Report Type: Report from Study
  Country: US (occurrence: US)
  Receive Date: 20151023
  Receipt Date: 20151027
  Transmission Date: 20160304
  Serious: No
  Sender: FDA-Public Use
  Company Number: US-ABBVIE-15P-163-1413032-00

PATIENT
  Age: 20 Year
  Sex: Female

DRUGS (2)
  1. ALLEGRA [Concomitant]
     Active Substance: FEXOFENADINE HYDROCHLORIDE
     Indication: PRODUCT USED FOR UNKNOWN INDICATION
  2. LUPRON DEPOT [Suspect]
     Active Substance: LEUPROLIDE ACETATE
     Indication: ENDOMETRIOSIS
     Route: 058
     Dates: start: 20150529

REACTIONS (6)
  - Breast swelling [Not Recovered/Not Resolved]
  - Anaemia [Unknown]
  - Menstrual disorder [Unknown]
  - Uterine spasm [Unknown]
  - Blood disorder [Unknown]
  - Breast tenderness [Not Recovered/Not Resolved]

NARRATIVE: CASE EVENT DATE: 20150530
